FAERS Safety Report 8587047-9 (Version None)
Quarter: 2012Q3

REPORT INFORMATION
  Report Type: 
  Country: None (occurrence: None)
  Receive Date: 20120810
  Receipt Date: 20120808
  Transmission Date: 20120928
  Serious: Yes (Hospitalization)
  Sender: FDA-Public Use
  Company Number: US-ROCHE-1099519

PATIENT
  Sex: Male

DRUGS (1)
  1. RITUXAN [Suspect]
     Indication: NON-HODGKIN'S LYMPHOMA
     Dosage: LAST DOSE ON 12/DEC/2011

REACTIONS (5)
  - BALANCE DISORDER [None]
  - DIZZINESS [None]
  - ULCER HAEMORRHAGE [None]
  - TREMOR [None]
  - DYSPNOEA [None]
